FAERS Safety Report 24536412 (Version 1)
Quarter: 2024Q4

REPORT INFORMATION
  Report Type: Report from Study
  Country: US (occurrence: US)
  Receive Date: 20241022
  Receipt Date: 20241022
  Transmission Date: 20250115
  Serious: Yes (Life-Threatening)
  Sender: MYLAN
  Company Number: US-MYLANLABS-2024M1093484

PATIENT
  Sex: Female

DRUGS (1)
  1. TYRVAYA [Suspect]
     Active Substance: VARENICLINE TARTRATE
     Indication: Product used for unknown indication
     Dosage: 0.03 MILLIGRAM, QD (ONCE A DAY)
     Route: 045
     Dates: start: 20241007

REACTIONS (9)
  - Anaphylactic shock [Unknown]
  - Hypersensitivity [Unknown]
  - Lacrimation increased [Unknown]
  - Oropharyngeal pain [Unknown]
  - Illness [Unknown]
  - Cough [Unknown]
  - Sneezing [Unknown]
  - Drug intolerance [Unknown]
  - Off label use [Unknown]
